FAERS Safety Report 6585127-0 (Version None)
Quarter: 2010Q1

REPORT INFORMATION
  Report Type: 
  Country: None (occurrence: None)
  Receive Date: 20100217
  Receipt Date: 20100205
  Transmission Date: 20100710
  Serious: Yes (Hospitalization)
  Sender: FDA-Public Use
  Company Number: GB-PFIZER INC-2010016012

PATIENT
  Age: 65 Year
  Sex: Male

DRUGS (3)
  1. BLINDED *NO SUBJECT DRUG [Suspect]
     Indication: PROSTATE CANCER
     Route: 048
  2. BLINDED *PLACEBO [Suspect]
     Indication: PROSTATE CANCER
     Route: 048
  3. BLINDED SUNITINIB MALATE [Suspect]
     Indication: PROSTATE CANCER
     Route: 048

REACTIONS (2)
  - PROCTALGIA [None]
  - RECTAL HAEMORRHAGE [None]
